FAERS Safety Report 6821628-5 (Version None)
Quarter: 2010Q3

REPORT INFORMATION
  Report Type: 
  Country: None (occurrence: None)
  Receive Date: 20100707
  Receipt Date: 20090327
  Transmission Date: 20110219
  Serious: No
  Sender: FDA-Public Use
  Company Number: US-PFIZER INC-2009181674

PATIENT
  Sex: Female

DRUGS (4)
  1. ZOLOFT [Suspect]
  2. SERTRALINE HCL [Suspect]
  3. ADDERALL 10 [Concomitant]
  4. METHADONE HYDROCHLORIDE [Concomitant]
     Dosage: UNK

REACTIONS (2)
  - DRUG ABUSE [None]
  - DRUG SCREEN FALSE POSITIVE [None]
